FAERS Safety Report 14181110 (Version 1)
Quarter: 2017Q4

REPORT INFORMATION
  Report Type: Spontaneous
  Country: US (occurrence: US)
  Receive Date: 20171112
  Receipt Date: 20171112
  Transmission Date: 20180321
  Serious: Yes (Death, Disabling, Other)
  Sender: FDA-Public Use
  Company Number: US-TEVA-825641USA

PATIENT
  Sex: Male

DRUGS (1)
  1. AMIODARONE [Suspect]
     Active Substance: AMIODARONE
     Indication: ATRIAL FIBRILLATION
     Route: 065
     Dates: start: 201503

REACTIONS (15)
  - Asthenia [Unknown]
  - Cough [Unknown]
  - Fatigue [Unknown]
  - Syncope [Unknown]
  - Off label use [Unknown]
  - Toxicity to various agents [Unknown]
  - Adverse event [Unknown]
  - Pulmonary fibrosis [Unknown]
  - Wheezing [Unknown]
  - Dyspnoea [Unknown]
  - Gait inability [Unknown]
  - Rash [Unknown]
  - Vision blurred [Unknown]
  - Death [Fatal]
  - Depression [Unknown]

NARRATIVE: CASE EVENT DATE: 201602
